FAERS Safety Report 19829557 (Version 3)
Quarter: 2023Q1

REPORT INFORMATION
  Report Type: Spontaneous
  Country: US (occurrence: US)
  Receive Date: 20210914
  Receipt Date: 20230131
  Transmission Date: 20230418
  Serious: No
  Sender: FDA-Public Use
  Company Number: NVSC2021US204294

PATIENT

DRUGS (13)
  1. OCTREOTIDE ACETATE [Suspect]
     Active Substance: OCTREOTIDE ACETATE
     Indication: Product used for unknown indication
     Dosage: UNK
     Route: 065
  2. OCTREOTIDE ACETATE [Suspect]
     Active Substance: OCTREOTIDE ACETATE
     Dosage: UNK
     Route: 065
  3. OCTREOTIDE ACETATE [Suspect]
     Active Substance: OCTREOTIDE ACETATE
     Dosage: UNK
     Route: 065
  4. TOBI [Suspect]
     Active Substance: TOBRAMYCIN
     Indication: Product used for unknown indication
     Dosage: UNK
  5. FORMOTEROL [Suspect]
     Active Substance: FORMOTEROL
     Indication: Product used for unknown indication
     Dosage: UNK
     Route: 065
  6. CLADRIBINE [Suspect]
     Active Substance: CLADRIBINE
     Indication: Product used for unknown indication
     Dosage: UNK
     Route: 065
  7. EPTIFIBATIDE [Suspect]
     Active Substance: EPTIFIBATIDE
     Indication: Product used for unknown indication
     Dosage: UNK
     Route: 065
  8. FAMOTIDINE [Suspect]
     Active Substance: FAMOTIDINE
     Indication: Product used for unknown indication
     Dosage: UNK
     Route: 065
  9. GEMCITABINE [Suspect]
     Active Substance: GEMCITABINE
     Indication: Product used for unknown indication
     Dosage: UNK
     Route: 065
  10. MUSE [Suspect]
     Active Substance: ALPROSTADIL
     Indication: Product used for unknown indication
     Dosage: UNK
     Route: 065
  11. TRASTUZUMAB [Suspect]
     Active Substance: TRASTUZUMAB
     Indication: Product used for unknown indication
     Dosage: UNK
     Route: 065
  12. PERFOROMIST [Suspect]
     Active Substance: FORMOTEROL FUMARATE DIHYDRATE
     Indication: Product used for unknown indication
     Dosage: UNK, (20 MCG/2ML)
  13. INSULIN GLARGINE [Suspect]
     Active Substance: INSULIN GLARGINE
     Indication: Product used for unknown indication
     Dosage: UNK
     Route: 065

REACTIONS (1)
  - Product storage error [Unknown]
